FAERS Safety Report 5290257-X (Version None)
Quarter: 2007Q2

REPORT INFORMATION
  Report Type: 
  Country: None (occurrence: None)
  Receive Date: 20070402
  Receipt Date: 20070321
  Transmission Date: 20071010
  Serious: Yes (Hospitalization)
  Sender: FDA-Public Use
  Company Number: 238833

PATIENT
  Age: 58 Year
  Sex: Male
  Weight: 106.6 kg

DRUGS (5)
  1. RAPTIVA [Suspect]
     Indication: PSORIASIS
     Dosage: 1.1 ML, 1/WEEK
     Dates: start: 20040727
  2. TRICOR [Concomitant]
  3. LIPITOR [Concomitant]
  4. METFORMIN HCL [Concomitant]
  5. COZAAR [Concomitant]

REACTIONS (1)
  - PANCREATITIS [None]
